FAERS Safety Report 12869115 (Version 1)
Quarter: 2016Q4

REPORT INFORMATION
  Report Type: Report from Study
  Country: US (occurrence: US)
  Receive Date: 20161020
  Receipt Date: 20161020
  Transmission Date: 20170207
  Serious: No
  Sender: FDA-Public Use
  Company Number: US-AMGEN-USASL2016104465

PATIENT
  Age: 66 Year
  Sex: Male
  Weight: 72.12 kg

DRUGS (13)
  1. ALDACTONE [Concomitant]
     Active Substance: SPIRONOLACTONE
     Dosage: UNK UNK, QD (0.5 TABS BY MOUTH)
     Route: 048
     Dates: start: 20160421, end: 20160614
  2. TYLENOL [Concomitant]
     Active Substance: ACETAMINOPHEN
     Dosage: 325 MG, Q4H
     Route: 048
  3. LASIX [Concomitant]
     Active Substance: FUROSEMIDE
     Dosage: 1 DF, QD
     Route: 048
     Dates: start: 20160421, end: 20160614
  4. PRILOSEC [Concomitant]
     Active Substance: OMEPRAZOLE MAGNESIUM
     Dosage: 1 DF, QD
     Route: 048
     Dates: start: 20151208, end: 20160614
  5. BRILINTA [Concomitant]
     Active Substance: TICAGRELOR
     Dosage: 1 DF, BID
     Route: 048
     Dates: start: 20151007, end: 20160614
  6. ZESTRIL [Concomitant]
     Active Substance: LISINOPRIL
     Dosage: 1 DF, QD EVERY EVENING
     Route: 048
     Dates: start: 20160421, end: 20160614
  7. GLUCOPHAGE [Concomitant]
     Active Substance: METFORMIN HYDROCHLORIDE
     Dosage: 500 MG, QD
     Route: 048
  8. CORLANOR [Suspect]
     Active Substance: IVABRADINE HYDROCHLORIDE
     Indication: PRODUCT USED FOR UNKNOWN INDICATION
     Dosage: 5 MG, BID
     Route: 048
  9. ASPIRIN. [Concomitant]
     Active Substance: ASPIRIN
     Dosage: 1 DF, UNK
     Route: 048
     Dates: start: 20151007, end: 20160614
  10. EMPAGLIFLOZIN W/LINAGLIPTIN [Concomitant]
     Dosage: 1 DF, QD
  11. TOPROL XL [Concomitant]
     Active Substance: METOPROLOL SUCCINATE
     Dosage: 1 DF, QD EVERY EVENING
     Route: 048
     Dates: start: 20160421, end: 20160614
  12. LIPITOR [Concomitant]
     Active Substance: ATORVASTATIN CALCIUM
     Dosage: 1 DF, QD EVERY EVENING
     Dates: start: 20151007, end: 20160614
  13. MULTIPLE VITAMINS [Concomitant]
     Active Substance: VITAMINS
     Dosage: 1 DF, QD
     Route: 048

REACTIONS (1)
  - Drug effect incomplete [Unknown]
